FAERS Safety Report 19273660 (Version 1)
Quarter: 2021Q2

REPORT INFORMATION
  Report Type: Spontaneous
  Country: US (occurrence: US)
  Receive Date: 20210519
  Receipt Date: 20210519
  Transmission Date: 20210717
  Serious: Yes (Other)
  Sender: FDA-Public Use
  Company Number: US-AMGEN-USASP2021074173

PATIENT
  Age: 67 Year
  Sex: Female

DRUGS (1)
  1. PROLIA [Suspect]
     Active Substance: DENOSUMAB
     Indication: OSTEOPENIA
     Dosage: UNK
     Route: 065

REACTIONS (5)
  - Atypical femur fracture [Recovering/Resolving]
  - Nerve block [Unknown]
  - Haematological malignancy [Unknown]
  - Immunodeficiency [Unknown]
  - Off label use [Unknown]

NARRATIVE: CASE EVENT DATE: 2021
